FAERS Safety Report 23683228 (Version 1)
Quarter: 2024Q1

REPORT INFORMATION
  Report Type: Spontaneous
  Country: US (occurrence: None)
  Receive Date: 20240328
  Receipt Date: 20240328
  Transmission Date: 20240409
  Serious: Yes (Other)
  Sender: FDA-Public Use
  Company Number: None

PATIENT
  Sex: Female

DRUGS (5)
  1. AZITHROMYCIN [Suspect]
     Active Substance: AZITHROMYCIN
     Indication: Lyme disease
     Dosage: FREQUENCY : TWICE A DAY;?
     Route: 048
  2. AZITHROMYCIN [Concomitant]
     Active Substance: AZITHROMYCIN
  3. CEFTRIAXONE SODIUM [Concomitant]
  4. DOCY 100 [Concomitant]
  5. FAMOTIDINE [Concomitant]

REACTIONS (1)
  - Cholecystectomy [None]
